FAERS Safety Report 17395159 (Version 1)
Quarter: 2020Q1

REPORT INFORMATION
  Report Type: Spontaneous
  Country: US (occurrence: US)
  Receive Date: 20200210
  Receipt Date: 20200210
  Transmission Date: 20200409
  Serious: No
  Sender: FDA-Public Use
  Company Number: US-GLAXOSMITHKLINE-US2020018360

PATIENT
  Age: 40 Year
  Sex: Female

DRUGS (1)
  1. ALLI [Suspect]
     Active Substance: ORLISTAT
     Indication: WEIGHT LOSS DIET
     Dosage: 4 PILLS A DAYFOR 2WEEKS

REACTIONS (3)
  - Off label use [Unknown]
  - Weight increased [Unknown]
  - Overdose [Unknown]
